FAERS Safety Report 25125242 (Version 1)
Quarter: 2025Q1

REPORT INFORMATION
  Report Type: Spontaneous
  Country: US (occurrence: US)
  Receive Date: 20250326
  Receipt Date: 20250326
  Transmission Date: 20250408
  Serious: Yes (Death, Other)
  Sender: CHATTEM
  Company Number: US-OPELLA-2025OHG008611

PATIENT
  Sex: Male

DRUGS (1)
  1. MENTHOL [Suspect]
     Active Substance: MENTHOL
     Indication: Product used for unknown indication

REACTIONS (3)
  - Peritoneal mesothelioma malignant [Fatal]
  - Exposure to chemical pollution [Fatal]
  - Occupational exposure to toxic agent [Fatal]

NARRATIVE: CASE EVENT DATE: 20240327
